FAERS Safety Report 10157398 (Version 2)
Quarter: 2014Q2

REPORT INFORMATION
  Report Type: Report from Study
  Country: DE (occurrence: DE)
  Receive Date: 20140507
  Receipt Date: 20140507
  Transmission Date: 20141212
  Serious: Yes (Other)
  Sender: FDA-Public Use
  Company Number: DE-CELGENEUS-062-21880-13072731

PATIENT
  Sex: 0

DRUGS (1)
  1. REVLIMID [Suspect]
     Indication: 5Q MINUS SYNDROME
     Dosage: 10 MILLIGRAM
     Route: 048

REACTIONS (7)
  - Palpitations [Unknown]
  - Joint effusion [Unknown]
  - Ulna fracture [Unknown]
  - Meningitis [Unknown]
  - Cerebral infarction [Unknown]
  - Infection [Unknown]
  - Urinary tract disorder [Unknown]
